FAERS Safety Report 6641606-9 (Version None)
Quarter: 2010Q1

REPORT INFORMATION
  Report Type: 
  Country: None (occurrence: None)
  Receive Date: 20100317
  Receipt Date: 20100317
  Transmission Date: 20100710
  Serious: Yes (Death)
  Sender: FDA-Public Use
  Company Number: None

PATIENT
  Age: 18 Year
  Sex: Female
  Weight: 64 kg

DRUGS (3)
  1. ANCOBON [Suspect]
     Indication: DRUG LEVEL
     Dosage: ANCOBON 1500 MG Q6H ORAL
     Route: 048
     Dates: start: 20091109, end: 20091110
  2. COMPAZINE [Suspect]
     Indication: NAUSEA
     Dosage: COMPAZINE 5 MG ONCE I.M.
     Route: 030
     Dates: start: 20091110
  3. COMPAZINE [Suspect]
     Indication: VOMITING
     Dosage: COMPAZINE 5 MG ONCE I.M.
     Route: 030
     Dates: start: 20091110

REACTIONS (7)
  - CARDIO-RESPIRATORY ARREST [None]
  - CARDIOMYOPATHY [None]
  - GENERALISED OEDEMA [None]
  - HEART INJURY [None]
  - MULTI-ORGAN FAILURE [None]
  - MYOCARDIAL OEDEMA [None]
  - PNEUMONIA [None]
